FAERS Safety Report 8291920-9 (Version None)
Quarter: 2012Q2

REPORT INFORMATION
  Report Type: 
  Country: None (occurrence: None)
  Receive Date: 20120417
  Receipt Date: 20120124
  Transmission Date: 20120825
  Serious: No
  Sender: FDA-Public Use
  Company Number: US-ASTRAZENECA-2012SE04883

PATIENT
  Age: 61 Year
  Sex: Female
  Weight: 54.9 kg

DRUGS (5)
  1. ALPRAZOLAM [Concomitant]
  2. SYMBICORT [Concomitant]
     Indication: EMPHYSEMA
  3. SPIRIVA [Concomitant]
  4. ZOVIRAX [Concomitant]
  5. NEXIUM [Suspect]
     Indication: GASTROOESOPHAGEAL REFLUX DISEASE
     Route: 048

REACTIONS (4)
  - DRUG INEFFECTIVE [None]
  - GASTROOESOPHAGEAL REFLUX DISEASE [None]
  - OFF LABEL USE [None]
  - DYSPEPSIA [None]
